FAERS Safety Report 19566875 (Version 6)
Quarter: 2021Q3

REPORT INFORMATION
  Report Type: Report from Study
  Country: FR (occurrence: FR)
  Receive Date: 20210716
  Receipt Date: 20210813
  Transmission Date: 20211014
  Serious: Yes (Hospitalization)
  Sender: FDA-Public Use
  Company Number: FR-ROCHE-2872183

PATIENT
  Age: 59 Year
  Sex: Male

DRUGS (28)
  1. VESICARE [Concomitant]
     Active Substance: SOLIFENACIN SUCCINATE
     Route: 048
  2. OMEPRAZOLE. [Concomitant]
     Active Substance: OMEPRAZOLE
     Dates: end: 20210217
  3. ETOMIDATE. [Concomitant]
     Active Substance: ETOMIDATE
     Dates: start: 20210214, end: 20210214
  4. NEURONTIN [Concomitant]
     Active Substance: GABAPENTIN
     Route: 048
  5. TEGRETOL [Concomitant]
     Active Substance: CARBAMAZEPINE
     Route: 048
  6. LEVOCARNIL [Concomitant]
     Active Substance: LEVOCARNITINE
     Dates: end: 20210217
  7. RITUXIMAB. [Concomitant]
     Active Substance: RITUXIMAB
     Route: 065
     Dates: start: 20200325
  8. FOSFOMYCINE [Concomitant]
     Active Substance: FOSFOMYCIN
     Dates: end: 20210217
  9. BETARSEC [Concomitant]
     Active Substance: BETAHISTINE HYDROCHLORIDE
  10. RIVOTRIL [Concomitant]
     Active Substance: CLONAZEPAM
     Dosage: 2.5?14 DROPS/DAY
     Dates: end: 20210217
  11. QUESTRAN [Concomitant]
     Active Substance: CHOLESTYRAMINE
     Route: 048
  12. EFFEXOR [Concomitant]
     Active Substance: VENLAFAXINE HYDROCHLORIDE
     Dates: end: 20210217
  13. LAROXYL [Concomitant]
     Active Substance: AMITRIPTYLINE HYDROCHLORIDE
     Dosage: 35 DROPS/ DAY
     Dates: end: 20210217
  14. OCRELIZUMAB. [Suspect]
     Active Substance: OCRELIZUMAB
     Indication: RELAPSING MULTIPLE SCLEROSIS
     Dosage: INITIAL DOSE OF TWO 300 MG INFUSIONS OF OCRELIZUMAB EACH SEPARATED BY 14 DAYS FOLLOWED BY ONE SINGLE
     Route: 042
     Dates: start: 20190321
  15. MODIODAL [Concomitant]
     Active Substance: MODAFINIL
     Route: 048
  16. TEGRETOL [Concomitant]
     Active Substance: CARBAMAZEPINE
  17. BETAHISTINE [Concomitant]
     Active Substance: BETAHISTINE
     Route: 048
  18. EFFEXOR [Concomitant]
     Active Substance: VENLAFAXINE HYDROCHLORIDE
  19. STRESAM [Concomitant]
     Active Substance: ETIFOXINE
     Route: 048
  20. DAFALGAN [Concomitant]
     Active Substance: ACETAMINOPHEN
     Route: 048
  21. CELOCURINE [Concomitant]
     Active Substance: SUCCINYLCHOLINE
     Dates: start: 20210214, end: 20210214
  22. PROPOFOL. [Concomitant]
     Active Substance: PROPOFOL
     Dates: start: 20210214, end: 20210215
  23. VENLAFAXINE [Concomitant]
     Active Substance: VENLAFAXINE HYDROCHLORIDE
     Dates: end: 20210217
  24. BETAHISTINE [Concomitant]
     Active Substance: BETAHISTINE
     Dates: start: 2020
  25. EDUCTYL [Concomitant]
     Active Substance: POTASSIUM BITARTRATE\SODIUM BICARBONATE
     Dates: end: 20210217
  26. NEURONTIN [Concomitant]
     Active Substance: GABAPENTIN
     Dates: end: 20210217
  27. TEGRETOL [Concomitant]
     Active Substance: CARBAMAZEPINE
  28. TOPALGIC (FRANCE) [Concomitant]
     Active Substance: TRAMADOL HYDROCHLORIDE

REACTIONS (1)
  - Cerebrovascular accident [Recovered/Resolved with Sequelae]

NARRATIVE: CASE EVENT DATE: 202006
